FAERS Safety Report 21847740 (Version 3)
Quarter: 2023Q1

REPORT INFORMATION
  Report Type: Report from Study
  Country: US (occurrence: US)
  Receive Date: 20230111
  Receipt Date: 20230203
  Transmission Date: 20230417
  Serious: Yes (Hospitalization, Other)
  Sender: FDA-Public Use
  Company Number: US-REGENERON PHARMACEUTICALS, INC.-2022-134591

PATIENT
  Sex: Female

DRUGS (2)
  1. CEMIPLIMAB [Suspect]
     Active Substance: CEMIPLIMAB
     Indication: Squamous cell carcinoma of skin
     Dosage: 350 MG, Q3W
     Route: 042
     Dates: start: 20221003
  2. CEMIPLIMAB [Suspect]
     Active Substance: CEMIPLIMAB
     Dosage: 350 MG, Q3W
     Route: 042
     Dates: start: 20221024, end: 20221024

REACTIONS (14)
  - Blister [Not Recovered/Not Resolved]
  - Breast cancer [Unknown]
  - Diabetes mellitus [Unknown]
  - Blister [Unknown]
  - Abdominal discomfort [Recovered/Resolved]
  - Pain [Unknown]
  - Blister [Recovering/Resolving]
  - Neck mass [Recovered/Resolved]
  - Skin lesion [Unknown]
  - Condition aggravated [Unknown]
  - Neoplasm [Unknown]
  - Discharge [Unknown]
  - Blood pressure abnormal [Unknown]
  - Blood glucose decreased [Unknown]

NARRATIVE: CASE EVENT DATE: 20221003
